FAERS Safety Report 10921769 (Version 1)
Quarter: 2015Q1

REPORT INFORMATION
  Report Type: Spontaneous
  Country: DK (occurrence: DK)
  Receive Date: 20150317
  Receipt Date: 20150317
  Transmission Date: 20150721
  Serious: Yes (Disabling)
  Sender: FDA-Public Use
  Company Number: DK-ACTAVIS-2015-04798

PATIENT
  Age: 48 Year
  Sex: Female
  Weight: 65 kg

DRUGS (4)
  1. EPIRUBICIN ACTAVIS [Suspect]
     Active Substance: EPIRUBICIN
     Indication: INVASIVE DUCTAL BREAST CARCINOMA
     Dosage: UNK
     Route: 042
     Dates: start: 20101102, end: 20101215
  2. TAXOTERE [Interacting]
     Active Substance: DOCETAXEL
     Indication: INVASIVE DUCTAL BREAST CARCINOMA
     Dosage: 100 MG/M2, 1/ THREE WEEKS;STRENGTH: 170
     Route: 065
     Dates: start: 20110106, end: 20110218
  3. SENDOXAN [Interacting]
     Active Substance: CYCLOPHOSPHAMIDE
     Indication: INVASIVE DUCTAL BREAST CARCINOMA
     Dosage: UNK
     Route: 065
     Dates: start: 20101102, end: 20101215
  4. TAMOXIFEN MYLAN [Interacting]
     Active Substance: TAMOXIFEN
     Indication: INVASIVE DUCTAL BREAST CARCINOMA
     Dosage: UNK
     Route: 065

REACTIONS (9)
  - Balance disorder [Not Recovered/Not Resolved]
  - Visual impairment [Unknown]
  - Vertigo [Not Recovered/Not Resolved]
  - Disturbance in attention [Not Recovered/Not Resolved]
  - Drug interaction [Unknown]
  - Headache [Unknown]
  - Dizziness [Not Recovered/Not Resolved]
  - Fatigue [Not Recovered/Not Resolved]
  - Brain injury [Unknown]

NARRATIVE: CASE EVENT DATE: 20110301
